FAERS Safety Report 9269042 (Version 1)
Quarter: 2013Q2

REPORT INFORMATION
  Report Type: Spontaneous
  Country: US (occurrence: US)
  Receive Date: 20130503
  Receipt Date: 20130503
  Transmission Date: 20140414
  Serious: No
  Sender: FDA-Public Use
  Company Number: US-009507513-1305USA000741

PATIENT
  Age: 27 Year
  Sex: Female

DRUGS (2)
  1. NUVARING [Suspect]
     Indication: CONTRACEPTION
     Dosage: 1 RING
     Route: 067
     Dates: start: 200605
  2. WELLBUTRIN [Concomitant]

REACTIONS (3)
  - Device expulsion [Unknown]
  - Device expulsion [Unknown]
  - Product quality issue [Unknown]
